FAERS Safety Report 8028248-8 (Version None)
Quarter: 2012Q1

REPORT INFORMATION
  Report Type: 
  Country: None (occurrence: None)
  Receive Date: 20120104
  Receipt Date: 20111219
  Transmission Date: 20120608
  Serious: Yes (Hospitalization, Other)
  Sender: FDA-Public Use
  Company Number: 11-099

PATIENT
  Age: 3 Day
  Sex: Male

DRUGS (1)
  1. LEVETIRACETAM [Suspect]
     Indication: CONVULSION NEONATAL
     Dosage: 20 MG/KG;XI; 19 MG/KG;QD

REACTIONS (3)
  - OFF LABEL USE [None]
  - CYANOSIS [None]
  - CONVULSION [None]
